FAERS Safety Report 4485828-4 (Version None)
Quarter: 2004Q3

REPORT INFORMATION
  Report Type: 
  Country: None (occurrence: None)
  Receive Date: 20040921
  Receipt Date: 20031030
  Transmission Date: 20050211
  Serious: Yes (Hospitalization)
  Sender: FDA-Public Use
  Company Number: 163-20785-03110040

PATIENT
  Age: 62 Year
  Sex: Female

DRUGS (7)
  1. THALOMID [Suspect]
     Indication: MULTIPLE MYELOMA
     Dosage: 200 MG, DAILY, ORAL
     Route: 048
     Dates: start: 20031007, end: 20031013
  2. MELPHALAN (MELPHALAN) [Suspect]
     Indication: MULTIPLE MYELOMA
     Dosage: 75 MG, INTRAVENOUS
     Route: 042
     Dates: start: 20031007, end: 20031008
  3. DEXAMETHASONE [Suspect]
     Indication: MULTIPLE MYELOMA
     Dosage: 40 MG, ORAL
     Route: 048
     Dates: start: 20031007, end: 20031010
  4. CISPLATIN [Suspect]
     Indication: MULTIPLE MYELOMA
     Dosage: 30 MG, INTRAVENOUS
     Route: 042
     Dates: start: 20031007, end: 20031008
  5. ADRIAMYCIN PFS [Suspect]
     Indication: MULTIPLE MYELOMA
     Dosage: 60 MG, INTRAVENOUS
     Route: 042
     Dates: start: 20031007, end: 20031008
  6. CYCLOPHOSPHAMIDE [Suspect]
     Indication: MULTIPLE MYELOMA
     Dosage: 1200 MG, INTRAVENOUS
     Route: 042
     Dates: start: 20031007, end: 20031008
  7. ETOPOSIDE [Suspect]
     Dosage: 120 MG, INTRAVENOUS
     Route: 042
     Dates: start: 20031007, end: 20031008

REACTIONS (6)
  - ANAEMIA [None]
  - CHEST PAIN [None]
  - DIZZINESS [None]
  - DYSPNOEA [None]
  - NAUSEA [None]
  - SUPRAVENTRICULAR TACHYCARDIA [None]
